FAERS Safety Report 8465150-1 (Version None)
Quarter: 2012Q2

REPORT INFORMATION
  Report Type: 
  Country: None (occurrence: None)
  Receive Date: 20120626
  Receipt Date: 20120620
  Transmission Date: 20120825
  Serious: Yes (Hospitalization, Other)
  Sender: FDA-Public Use
  Company Number: US-PFIZER INC-2012149068

PATIENT
  Sex: Female
  Weight: 47.619 kg

DRUGS (10)
  1. RAPAMUNE [Concomitant]
     Indication: PROPHYLAXIS AGAINST TRANSPLANT REJECTION
     Dosage: 2 MG, DAILY
  2. PREDNISONE [Concomitant]
     Indication: PANCREAS TRANSPLANT
  3. PENTOXIFYLLINE [Concomitant]
     Indication: ARTERIAL DISORDER
     Dosage: 400 MG, DAILY
  4. RENVELA [Concomitant]
     Indication: DIALYSIS
     Dosage: UNK
  5. SENSIPAR [Concomitant]
     Indication: DIALYSIS
     Dosage: 30 MG, DAILY
  6. REVATIO [Suspect]
     Indication: PULMONARY HYPERTENSION
     Dosage: 20 MG, 3X/DAY
     Route: 048
  7. PREDNISONE [Concomitant]
     Indication: RENAL TRANSPLANT
     Dosage: 10 MG, 2X/DAY
  8. ACETYLSALICYLIC ACID [Concomitant]
     Indication: CEREBROVASCULAR ACCIDENT PROPHYLAXIS
     Dosage: 81 MG, DAILY
  9. OMEPRAZOLE [Concomitant]
     Indication: ABDOMINAL DISCOMFORT
     Dosage: 20 MG, DAILY
  10. METOPROLOL [Concomitant]
     Indication: BLOOD PRESSURE ABNORMAL
     Dosage: 75 MG, DAILY
     Route: 048

REACTIONS (7)
  - PULMONARY HYPERTENSION [None]
  - WEIGHT DECREASED [None]
  - ATRIAL FIBRILLATION [None]
  - SMALL INTESTINE ULCER [None]
  - URINARY TRACT INFECTION [None]
  - HYPOTENSION [None]
  - PNEUMONIA [None]
